FAERS Safety Report 9123423 (Version 1)
Quarter: 2013Q1

REPORT INFORMATION
  Report Type: Spontaneous
  Country: CH (occurrence: CH)
  Receive Date: 20130114
  Receipt Date: 20130114
  Transmission Date: 20140127
  Serious: Yes (Life-Threatening)
  Sender: FDA-Public Use
  Company Number: CH-ROCHE-1178537

PATIENT
  Age: 64 Year
  Sex: Male
  Weight: 85 kg

DRUGS (16)
  1. MABTHERA [Suspect]
     Indication: CHRONIC LYMPHOCYTIC LEUKAEMIA
     Route: 041
     Dates: start: 20121204, end: 20121204
  2. RIBOMUSTIN [Suspect]
     Indication: CHRONIC LYMPHOCYTIC LEUKAEMIA
     Route: 041
     Dates: start: 20121204, end: 20121205
  3. SINTROM [Suspect]
     Indication: EMBOLISM
     Route: 048
     Dates: start: 201112, end: 20121215
  4. SINTROM [Suspect]
     Indication: THROMBOSIS
  5. SOLU-MEDROL [Concomitant]
     Indication: PROPHYLACTIC CHEMOTHERAPY
     Route: 040
     Dates: start: 20121204, end: 20121205
  6. KYTRIL [Concomitant]
     Indication: PROPHYLACTIC CHEMOTHERAPY
     Route: 040
     Dates: start: 20121204, end: 20121205
  7. PRIMPERAN (SWITZERLAND) [Concomitant]
     Route: 040
     Dates: start: 20121204, end: 20121208
  8. TAVEGYL [Concomitant]
     Indication: PROPHYLACTIC CHEMOTHERAPY
     Route: 040
     Dates: start: 20121204, end: 20121205
  9. DAFALGAN [Concomitant]
     Indication: PAIN
     Route: 048
     Dates: start: 20121204, end: 20121205
  10. GRANULOCYTE COLONY STIMULATING FACTOR [Concomitant]
     Route: 058
     Dates: start: 20121212
  11. ZYLORIC [Concomitant]
     Indication: PROPHYLACTIC CHEMOTHERAPY
     Route: 048
     Dates: start: 20121204, end: 20121209
  12. INDOCID [Concomitant]
     Indication: GOUT
     Route: 048
  13. COLCHICINE [Concomitant]
     Indication: GOUT
     Route: 048
     Dates: start: 20121221, end: 20121222
  14. OMEPRAZOLE [Concomitant]
     Indication: PROPHYLACTIC CHEMOTHERAPY
     Route: 048
     Dates: start: 20121205, end: 201212
  15. KONAKION [Concomitant]
     Indication: ANAL HAEMORRHAGE
     Route: 040
     Dates: start: 20121219, end: 20121219
  16. KONAKION [Concomitant]
     Indication: RECTAL HAEMORRHAGE

REACTIONS (2)
  - Cardiac arrest [Recovered/Resolved]
  - Myocardial infarction [Recovering/Resolving]
